FAERS Safety Report 18852895 (Version 1)
Quarter: 2021Q1

REPORT INFORMATION
  Report Type: Spontaneous
  Country: US (occurrence: US)
  Receive Date: 20210205
  Receipt Date: 20210205
  Transmission Date: 20210420
  Serious: No
  Sender: FDA-Public Use
  Company Number: US-ASTRAZENECA-2021A005312

PATIENT
  Age: 20135 Day
  Sex: Female
  Weight: 103.4 kg

DRUGS (3)
  1. PULMICORT FLEXHALER [Suspect]
     Active Substance: BUDESONIDE
     Indication: COVID-19 PNEUMONIA
     Route: 055
     Dates: start: 20210105
  2. ATORVASTATIN [Concomitant]
     Active Substance: ATORVASTATIN
     Indication: BLOOD CHOLESTEROL INCREASED
     Route: 048
  3. METOPROLOL SUCCINATE. [Concomitant]
     Active Substance: METOPROLOL SUCCINATE
     Indication: ANXIETY
     Route: 048

REACTIONS (6)
  - Drug delivery system issue [Unknown]
  - Device malfunction [Unknown]
  - Intentional device misuse [Recovered/Resolved]
  - Illness [Unknown]
  - Product dose omission issue [Not Recovered/Not Resolved]
  - Incorrect dose administered by device [Recovered/Resolved]

NARRATIVE: CASE EVENT DATE: 20210105
